FAERS Safety Report 8407189-8 (Version None)
Quarter: 2012Q2

REPORT INFORMATION
  Report Type: 
  Country: None (occurrence: None)
  Receive Date: 20120604
  Receipt Date: 20120521
  Transmission Date: 20120825
  Serious: Yes (Death, Other)
  Sender: FDA-Public Use
  Company Number: BR-ASTRAZENECA-2012SE32309

PATIENT
  Sex: Female

DRUGS (4)
  1. VACCINE IPAD D.T.C. (TETANUS VACCINE, DIPHTERIA VACCINE, PERTUSSIS VAC [Concomitant]
  2. FLU VACCINE [Concomitant]
  3. SYNAGIS [Suspect]
     Indication: VENTRICULAR SEPTAL DEFECT
     Route: 030
     Dates: start: 20120509
  4. QUADRIVALENT VACCINE [Suspect]
     Route: 065

REACTIONS (5)
  - PYREXIA [None]
  - IRRITABILITY [None]
  - VOMITING [None]
  - DEATH [None]
  - CONVULSION [None]
